FAERS Safety Report 17717061 (Version 1)
Quarter: 2020Q2

REPORT INFORMATION
  Report Type: Spontaneous
  Country: US (occurrence: US)
  Receive Date: 20200428
  Receipt Date: 20200428
  Transmission Date: 20200714
  Serious: No
  Sender: FDA-Public Use
  Company Number: US-SA-2020SA109214

PATIENT
  Age: 70 Year
  Sex: Female

DRUGS (1)
  1. LANTUS SOLOSTAR [Suspect]
     Active Substance: INSULIN GLARGINE
     Indication: TYPE 2 DIABETES MELLITUS
     Dosage: AVERAGE 20-25 UNITS, QD

REACTIONS (4)
  - Cardiac disorder [Unknown]
  - Diabetic retinopathy [Unknown]
  - Wrong technique in device usage process [Unknown]
  - Product storage error [Unknown]
